FAERS Safety Report 9514628 (Version 1)
Quarter: 2013Q1

REPORT INFORMATION
  Report Type: Spontaneous
  Country: US (occurrence: None)
  Receive Date: 20130305
  Receipt Date: 20130305
  Transmission Date: 20140127
  Serious: Yes (Other)
  Sender: FDA-Public Use
  Company Number: 163-21880-12090534

PATIENT
  Age: 69 Year
  Sex: Female

DRUGS (4)
  1. REVLIMID (LENALIDOMIDE) [Suspect]
     Indication: PLASMA CELL MYELOMA
     Route: 048
     Dates: start: 20120817
  2. VELCADE (BORTEZOMIB) [Concomitant]
  3. RENAPLEX D [Concomitant]
  4. OMEPRAZOLE [Concomitant]

REACTIONS (2)
  - Pruritus [None]
  - Hypotension [None]
